FAERS Safety Report 15936922 (Version 1)
Quarter: 2019Q1

REPORT INFORMATION
  Report Type: Spontaneous
  Country: JP (occurrence: JP)
  Receive Date: 20190208
  Receipt Date: 20190208
  Transmission Date: 20190417
  Serious: Yes (Other)
  Sender: FDA-Public Use
  Company Number: JP-SA-2019SA032627

PATIENT
  Age: 75 Year
  Sex: Female

DRUGS (6)
  1. CEPHARANTHINE [Concomitant]
     Active Substance: CEPHARANTHINE
  2. VITAMIN E [Concomitant]
     Active Substance: .ALPHA.-TOCOPHEROL
  3. PABRON GOLD [Suspect]
     Active Substance: AMINOPHENAZONE\CAFFEINE\CALCIUM\CHLORPHENIRAMINE\DIHYDROCODEINE\GUAIFENESIN\METAMIZOLE\METHYLEPHEDRINE\RIBOFLAVIN\TAURINE\THIAMINE
     Indication: UPPER RESPIRATORY TRACT INFLAMMATION
     Dosage: UNK UNK, UNK
  4. LEVOCETIRIZINE [Suspect]
     Active Substance: LEVOCETIRIZINE
     Indication: DERMATITIS CONTACT
     Dosage: UNK
     Route: 048
  5. CAPSAICIN. [Concomitant]
     Active Substance: CAPSAICIN
  6. LEVOCETIRIZINE [Suspect]
     Active Substance: LEVOCETIRIZINE
     Indication: ALOPECIA AREATA
     Dosage: UNK
     Dates: start: 201405, end: 201503

REACTIONS (4)
  - Alopecia areata [Not Recovered/Not Resolved]
  - Depressed mood [Unknown]
  - Off label use [Unknown]
  - Upper respiratory tract inflammation [Unknown]

NARRATIVE: CASE EVENT DATE: 201405
